FAERS Safety Report 6185267-4 (Version None)
Quarter: 2009Q2

REPORT INFORMATION
  Report Type: 
  Country: None (occurrence: None)
  Receive Date: 20090511
  Receipt Date: 20090428
  Transmission Date: 20091009
  Serious: Yes (Other)
  Sender: FDA-Public Use
  Company Number: US-ROCHE-433876

PATIENT
  Sex: Male
  Weight: 97.5 kg

DRUGS (5)
  1. ACCUTANE [Suspect]
     Route: 048
     Dates: start: 20010803, end: 20011018
  2. ACCUTANE [Suspect]
     Dosage: FREQUENCY WAS REPORTED AS EVERY OTHER DAY.
     Route: 048
     Dates: start: 20011025, end: 20011102
  3. MINOCYCLIN [Concomitant]
     Indication: ACNE
  4. TOPROL-XL [Concomitant]
  5. ERY-TAB [Concomitant]
     Indication: ACNE

REACTIONS (15)
  - ASTHENIA [None]
  - BACK PAIN [None]
  - DIZZINESS [None]
  - EPISTAXIS [None]
  - FAT TISSUE INCREASED [None]
  - FATIGUE [None]
  - HEADACHE [None]
  - HEPATITIS [None]
  - HYPERTENSION [None]
  - LIVER DISORDER [None]
  - LIVER FUNCTION TEST ABNORMAL [None]
  - LIVER INJURY [None]
  - NIGHT BLINDNESS [None]
  - SOMNOLENCE [None]
  - TENDONITIS [None]
